FAERS Safety Report 4454357-6 (Version None)
Quarter: 2004Q3

REPORT INFORMATION
  Report Type: 
  Country: None (occurrence: None)
  Receive Date: 20040920
  Receipt Date: 20040907
  Transmission Date: 20050211
  Serious: Yes (Hospitalization, Other)
  Sender: FDA-Public Use
  Company Number: US-MERCK-0409USA00351

PATIENT
  Age: 72 Year
  Sex: Male
  Weight: 91 kg

DRUGS (6)
  1. METFORMIN HYDROCHLORIDE [Concomitant]
     Indication: DIABETES MELLITUS NON-INSULIN-DEPENDENT
     Route: 048
  2. METOPROLOL SUCCINATE [Concomitant]
     Indication: HYPERTENSION
     Route: 048
  3. VIOXX [Suspect]
     Indication: ARTHRITIS
     Route: 048
     Dates: end: 20040721
  4. ASPIRIN [Suspect]
     Route: 048
     Dates: end: 20040721
  5. ATORVASTATIN CALCIUM [Concomitant]
     Indication: BLOOD CHOLESTEROL INCREASED
     Route: 048
  6. PLAVIX [Suspect]
     Route: 048
     Dates: start: 20030201, end: 20040721

REACTIONS (3)
  - CARDIAC DISORDER [None]
  - DIVERTICULUM [None]
  - GASTROINTESTINAL HAEMORRHAGE [None]
